FAERS Safety Report 25590860 (Version 1)
Quarter: 2025Q3

REPORT INFORMATION
  Report Type: Spontaneous
  Country: US (occurrence: None)
  Receive Date: 20250721
  Receipt Date: 20250721
  Transmission Date: 20251021
  Serious: Yes (Other)
  Sender: FDA-CTU
  Company Number: None

PATIENT
  Age: 71 Year
  Sex: Female

DRUGS (12)
  1. KISQALI [Suspect]
     Active Substance: RIBOCICLIB SUCCINATE
     Indication: Breast cancer
     Dosage: FREQUENCY : DAILY;?
     Route: 048
  2. AMLODIPINE BESYLATE [Concomitant]
     Active Substance: AMLODIPINE BESYLATE
  3. LETROZOLE [Concomitant]
     Active Substance: LETROZOLE
  4. MELOXICAM [Concomitant]
     Active Substance: MELOXICAM
  5. ATORVASTATIN [Concomitant]
     Active Substance: ATORVASTATIN
  6. MYRBETRIQ [Concomitant]
     Active Substance: MIRABEGRON
  7. XGEVA [Concomitant]
     Active Substance: DENOSUMAB
  8. VITAMINS NOS [Concomitant]
     Active Substance: VITAMINS
  9. FISH OIL [Concomitant]
     Active Substance: FISH OIL
  10. VITAMINS [Concomitant]
     Active Substance: VITAMINS
  11. VITAMIN D3 [Concomitant]
     Active Substance: CHOLECALCIFEROL
  12. ARTIFICIAL TEARS [Concomitant]

REACTIONS (2)
  - Swelling [None]
  - Therapy interrupted [None]
